FAERS Safety Report 23576460 (Version 1)
Quarter: 2024Q1

REPORT INFORMATION
  Report Type: Spontaneous
  Country: US (occurrence: US)
  Receive Date: 20240228
  Receipt Date: 20240228
  Transmission Date: 20240410
  Serious: No
  Sender: FDA-Public Use
  Company Number: US-UPSHER-SMITH LABORATORIES, LLC-2023USL00418

PATIENT

DRUGS (1)
  1. MYORISAN [Suspect]
     Active Substance: ISOTRETINOIN

REACTIONS (8)
  - Acne cystic [Unknown]
  - Perioral dermatitis [Unknown]
  - Skin texture abnormal [Unknown]
  - Skin exfoliation [Unknown]
  - Lip dry [Unknown]
  - Dry mouth [Unknown]
  - Cheilitis [Unknown]
  - Dry skin [Unknown]
